FAERS Safety Report 7020858-X (Version None)
Quarter: 2010Q3

REPORT INFORMATION
  Report Type: 
  Country: None (occurrence: None)
  Receive Date: 20100929
  Receipt Date: 20100928
  Transmission Date: 20110219
  Serious: Yes (Hospitalization)
  Sender: FDA-Public Use
  Company Number: GXKR2010DE10888

PATIENT
  Sex: Female

DRUGS (1)
  1. METHOTREXATE (NGX) [Suspect]
     Indication: POLYARTHRITIS
     Dosage: UNK
     Dates: start: 19990501, end: 20010101

REACTIONS (3)
  - DEPRESSION [None]
  - DRUG TOXICITY [None]
  - SUICIDE ATTEMPT [None]
